FAERS Safety Report 6280263-0 (Version None)
Quarter: 2009Q3

REPORT INFORMATION
  Report Type: 
  Country: None (occurrence: None)
  Receive Date: 20090723
  Receipt Date: 20090716
  Transmission Date: 20100115
  Serious: Yes (Other)
  Sender: FDA-Public Use
  Company Number: US-ASTRAZENECA-2009UW20135

PATIENT

DRUGS (5)
  1. NEXIUM [Suspect]
     Route: 048
     Dates: start: 20080101
  2. ANGIOMAX [Suspect]
     Indication: PERCUTANEOUS CORONARY INTERVENTION
     Dosage: 0.75MG/KG BOLUS, INTRAVENOUS
     Route: 042
     Dates: start: 20080101, end: 20080101
  3. ANGIOMAX [Suspect]
     Dosage: 1.75MG/KG/HR
     Route: 042
     Dates: start: 20080101, end: 20080101
  4. PROTONIX [Suspect]
     Dates: start: 20080101
  5. PLAVIX [Concomitant]

REACTIONS (1)
  - CORONARY ARTERY OCCLUSION [None]
